FAERS Safety Report 7399751-9 (Version None)
Quarter: 2011Q2

REPORT INFORMATION
  Report Type: 
  Country: None (occurrence: None)
  Receive Date: 20110407
  Receipt Date: 20110331
  Transmission Date: 20111010
  Serious: Yes (Other)
  Sender: FDA-Public Use
  Company Number: US-PFIZER INC-2011072294

PATIENT
  Sex: Female
  Weight: 58.957 kg

DRUGS (1)
  1. ANBESOL [Suspect]
     Indication: TOOTHACHE
     Dosage: UNK
     Route: 048
     Dates: start: 20110330, end: 20110331

REACTIONS (3)
  - LIP SWELLING [None]
  - EYE SWELLING [None]
  - LIP PAIN [None]
